FAERS Safety Report 11940762 (Version 2)
Quarter: 2016Q1

REPORT INFORMATION
  Report Type: Spontaneous
  Country: US (occurrence: US)
  Receive Date: 20160122
  Receipt Date: 20160201
  Transmission Date: 20160526
  Serious: No
  Sender: FDA-Public Use
  Company Number: ALCN2016US000599

PATIENT
  Age: 76 Year
  Sex: Male

DRUGS (2)
  1. PILOCARPINE HCL [Suspect]
     Active Substance: PILOCARPINE HYDROCHLORIDE
     Indication: PRODUCT USED FOR UNKNOWN INDICATION
     Dosage: UNK
     Route: 047
     Dates: start: 20151223, end: 20160109
  2. PILOCARPINE HCL [Suspect]
     Active Substance: PILOCARPINE HYDROCHLORIDE
     Dosage: UNK
     Route: 047
     Dates: start: 20151223, end: 20160109

REACTIONS (4)
  - Ocular hyperaemia [Recovered/Resolved]
  - Eye irritation [Recovered/Resolved]
  - Eye pruritus [Recovered/Resolved]
  - Eyelid margin crusting [Recovered/Resolved]

NARRATIVE: CASE EVENT DATE: 20151229
